FAERS Safety Report 5813567-3 (Version None)
Quarter: 2008Q3

REPORT INFORMATION
  Report Type: 
  Country: None (occurrence: None)
  Receive Date: 20080717
  Receipt Date: 20080715
  Transmission Date: 20090109
  Serious: Yes (Other)
  Sender: FDA-Public Use
  Company Number: GB-WYE-H02307508

PATIENT
  Age: 73 Year
  Sex: Female

DRUGS (4)
  1. TIGECYCLINE [Suspect]
     Indication: ABDOMINAL ABSCESS
     Dosage: UNKNOWN
     Route: 065
  2. VANCOMYCIN HCL [Suspect]
     Indication: ABDOMINAL ABSCESS
  3. CIPROFLOXACIN [Suspect]
     Indication: ABDOMINAL ABSCESS
  4. METRONIDAZOLE HCL [Suspect]
     Indication: ABDOMINAL ABSCESS

REACTIONS (2)
  - CLOSTRIDIAL INFECTION [None]
  - PSEUDOMEMBRANOUS COLITIS [None]
